FAERS Safety Report 7880749-9 (Version None)
Quarter: 2011Q4

REPORT INFORMATION
  Report Type: 
  Country: None (occurrence: None)
  Receive Date: 20111101
  Receipt Date: 20111019
  Transmission Date: 20120403
  Serious: Yes (Hospitalization, Other)
  Sender: FDA-Public Use
  Company Number: CA-ELI_LILLY_AND_COMPANY-CA201110004867

PATIENT
  Sex: Female

DRUGS (14)
  1. ZYPREXA [Suspect]
     Dosage: 50 MG, QD
  2. RISPERDAL [Concomitant]
  3. ZIPRASIDONE HYDROCHLORIDE [Concomitant]
  4. IMOVANE [Concomitant]
  5. ZYPREXA [Suspect]
     Indication: SCHIZOPHRENIA
     Dosage: 40 MG, QD
     Dates: start: 20030722
  6. ZYPREXA [Suspect]
     Dosage: 30 MG, QD
  7. ABILIFY [Concomitant]
  8. DIVALPROEX SODIUM [Concomitant]
  9. PROZAC [Concomitant]
  10. SEROQUEL [Concomitant]
  11. WELLBUTRIN [Concomitant]
  12. ZYPREXA [Suspect]
     Dosage: 20 MG, QD
  13. METHOTRIMEPRAZINE [Concomitant]
  14. PERINDOPRIL ERBUMINE [Concomitant]

REACTIONS (12)
  - ASPARTATE AMINOTRANSFERASE INCREASED [None]
  - DIABETIC KETOACIDOSIS [None]
  - ALANINE AMINOTRANSFERASE INCREASED [None]
  - TYPE 1 DIABETES MELLITUS [None]
  - HEPATIC STEATOSIS [None]
  - HEPATOMEGALY [None]
  - HAEMORRHAGIC OVARIAN CYST [None]
  - OVERDOSE [None]
  - WEIGHT INCREASED [None]
  - CULTURE URINE POSITIVE [None]
  - ELECTROCARDIOGRAM QT PROLONGED [None]
  - MEAN CELL HAEMOGLOBIN [None]
